FAERS Safety Report 17507325 (Version 5)
Quarter: 2020Q2

REPORT INFORMATION
  Report Type: Report from Study
  Country: US (occurrence: US)
  Receive Date: 20200306
  Receipt Date: 20200603
  Transmission Date: 20200713
  Serious: No
  Sender: FDA-Public Use
  Company Number: NVSC2020US063923

PATIENT
  Age: 78 Year
  Sex: Male

DRUGS (1)
  1. BEOVU [Suspect]
     Active Substance: BROLUCIZUMAB-DBLL
     Indication: AGE-RELATED MACULAR DEGENERATION
     Dosage: UNK
     Route: 047
     Dates: start: 20200131

REACTIONS (3)
  - Visual impairment [Unknown]
  - Eye pain [Unknown]
  - Lacrimation increased [Unknown]

NARRATIVE: CASE EVENT DATE: 20200228
